FAERS Safety Report 23541492 (Version 1)
Quarter: 2024Q1

REPORT INFORMATION
  Report Type: Report from Study
  Country: US (occurrence: US)
  Receive Date: 20240219
  Receipt Date: 20240219
  Transmission Date: 20240409
  Serious: Yes (Hospitalization, Other)
  Sender: FDA-Public Use
  Company Number: US-ABBVIE-5642551

PATIENT
  Sex: Female

DRUGS (1)
  1. HUMIRA [Suspect]
     Active Substance: ADALIMUMAB
     Indication: Product used for unknown indication
     Dosage: FORM STRENGTH:40MG
     Route: 058
     Dates: start: 20220214

REACTIONS (6)
  - Shock [Unknown]
  - Influenza [Recovering/Resolving]
  - Delusional disorder, unspecified type [Unknown]
  - Fluid intake reduced [Unknown]
  - Feeding disorder [Unknown]
  - Full blood count decreased [Unknown]
